FAERS Safety Report 7767270 (Version 4)
Quarter: 2013Q2

REPORT INFORMATION
  Report Type: Report from Study
  Country: DE (occurrence: DE)
  Receive Date: 20110120
  Receipt Date: 20130405
  Transmission Date: 20140414
  Serious: Yes (Hospitalization)
  Sender: FDA-Public Use
  Company Number: DE-ROCHE-752822

PATIENT
  Age: 72 Year
  Sex: Male
  Weight: 58 kg

DRUGS (6)
  1. CAPECITABINE [Suspect]
     Indication: COLON CANCER
     Dosage: SCHEDULE: 825 MG.M2 PO BID D1-33 W/O WEEKENDS+ OPTIONAL BOOST.
     Route: 048
  2. CAPECITABINE [Suspect]
     Dosage: DOSE:3 TABLETS
     Route: 048
  3. OXALIPLATIN [Suspect]
     Indication: COLON CANCER
     Dosage: UNIT ENTERED AS PER PROTOCOL. LAST DOSE PRIOR TO SAE ON 11 NOVEMBER 2009.
     Route: 042
  4. IMODIUM [Concomitant]
     Indication: DIARRHOEA
     Dosage: DOSE: 4X1
     Route: 065
     Dates: start: 20091108, end: 20091116
  5. ACC LONG [Concomitant]
     Indication: COUGH
     Dosage: DOSE: 1X1.
     Route: 065
     Dates: start: 20091108, end: 20091117
  6. KALIUM NATRIUM TARTARICUM [Concomitant]
     Indication: HYPOCALCAEMIA
     Dosage: DOSE:3X1
     Route: 065
     Dates: start: 20091111, end: 20091116

REACTIONS (3)
  - Vertigo [Recovered/Resolved]
  - General physical health deterioration [Recovered/Resolved]
  - Vomiting [Recovered/Resolved]
